FAERS Safety Report 8169904-0 (Version None)
Quarter: 2012Q1

REPORT INFORMATION
  Report Type: 
  Country: None (occurrence: None)
  Receive Date: 20120228
  Receipt Date: 20120228
  Transmission Date: 20120608
  Serious: Yes (Other)
  Sender: FDA-Public Use
  Company Number: US-PFIZER INC-2012050033

PATIENT
  Sex: Female

DRUGS (3)
  1. NEVANAC [Suspect]
     Indication: EYE DISORDER
     Dosage: UNK
     Route: 047
  2. SYNTHROID [Concomitant]
     Indication: HYPOTHYROIDISM
     Dosage: 100MCG DAILY
  3. GEODON [Suspect]
     Indication: NERVOUSNESS
     Dosage: 80 MG, 2X/DAY
     Route: 048

REACTIONS (5)
  - GLAUCOMA [None]
  - VISION BLURRED [None]
  - VISUAL FIELD DEFECT [None]
  - IRITIS [None]
  - ALOPECIA [None]
